FAERS Safety Report 18189657 (Version 1)
Quarter: 2020Q3

REPORT INFORMATION
  Report Type: Spontaneous
  Country: US (occurrence: US)
  Receive Date: 20200824
  Receipt Date: 20200824
  Transmission Date: 20201103
  Serious: No
  Sender: FDA-Public Use
  Company Number: US-ALEXION-A202012215

PATIENT
  Sex: Female
  Weight: 41.5 kg

DRUGS (2)
  1. STRENSIQ [Suspect]
     Active Substance: ASFOTASE ALFA
     Dosage: UNK (DOSE INCREASED)
     Route: 065
  2. STRENSIQ [Suspect]
     Active Substance: ASFOTASE ALFA
     Indication: HYPOPHOSPHATASIA
     Dosage: 2 MG/KG, TIW
     Route: 065

REACTIONS (3)
  - Blood phosphorus increased [Unknown]
  - Weight increased [Unknown]
  - Bone density decreased [Unknown]

NARRATIVE: CASE EVENT DATE: 2018
